FAERS Safety Report 5711327-5 (Version None)
Quarter: 2008Q2

REPORT INFORMATION
  Report Type: 
  Country: None (occurrence: None)
  Receive Date: 20080421
  Receipt Date: 20080411
  Transmission Date: 20081010
  Serious: Yes (Other)
  Sender: FDA-Public Use
  Company Number: A0708762A

PATIENT
  Age: 17 Year
  Sex: Male
  Weight: 69.1 kg

DRUGS (4)
  1. WELLBUTRIN XL [Suspect]
     Indication: DEPRESSION
     Dosage: 150MG PER DAY
     Route: 048
     Dates: start: 20080101
  2. ALLEGRA [Concomitant]
     Indication: MULTIPLE ALLERGIES
     Dosage: 180MG IN THE MORNING
     Route: 048
     Dates: start: 20070201
  3. BACTRIM [Concomitant]
     Indication: ACNE
     Dosage: 1TAB PER DAY
     Route: 048
     Dates: start: 20041201
  4. CLONIDINE HCL [Concomitant]
     Indication: ATTENTION DEFICIT/HYPERACTIVITY DISORDER
     Dosage: .1MG AT NIGHT
     Route: 048

REACTIONS (2)
  - NEPHROLITHIASIS [None]
  - URINARY TRACT DISORDER [None]
